FAERS Safety Report 24873803 (Version 1)
Quarter: 2025Q1

REPORT INFORMATION
  Report Type: Spontaneous
  Country: US (occurrence: None)
  Receive Date: 20250121
  Receipt Date: 20250121
  Transmission Date: 20250408
  Serious: Yes (Other)
  Sender: FDA-CTU
  Company Number: None

PATIENT
  Age: 33 Year
  Sex: Female
  Weight: 78.07 kg

DRUGS (5)
  1. COBENFY [Suspect]
     Active Substance: TROSPIUM CHLORIDE\XANOMELINE
     Indication: Schizoaffective disorder
     Dosage: FREQUENCY : TWICE A DAY;?
     Route: 048
     Dates: start: 20250102, end: 20250121
  2. Pristiq 100 mg QHS [Concomitant]
     Dates: start: 20230101
  3. Vitamin D3 2000 IU QHS [Concomitant]
     Dates: start: 20230101
  4. Klonopin 1 mg daily PRN anxiety [Concomitant]
     Dates: start: 20230101
  5. Vraylar 3 mg QHS [Concomitant]
     Dates: start: 20230101, end: 20241130

REACTIONS (14)
  - Fatigue [None]
  - Depression [None]
  - Asthenia [None]
  - Feeling abnormal [None]
  - Brain fog [None]
  - Sedation [None]
  - Salivary hypersecretion [None]
  - Dry mouth [None]
  - Hallucination, auditory [None]
  - Hallucination, visual [None]
  - Drug intolerance [None]
  - Drug ineffective [None]
  - Feeling of despair [None]
  - Decreased appetite [None]

NARRATIVE: CASE EVENT DATE: 20250116
